FAERS Safety Report 23040035 (Version 1)
Quarter: 2023Q4

REPORT INFORMATION
  Report Type: Report from Study
  Country: TR (occurrence: TR)
  Receive Date: 20231006
  Receipt Date: 20231006
  Transmission Date: 20240110
  Serious: Yes (Hospitalization)
  Sender: FDA-Public Use
  Company Number: TR-JNJFOC-20230942775

PATIENT
  Age: 70 Year
  Sex: Female

DRUGS (9)
  1. ERDAFITINIB [Suspect]
     Active Substance: ERDAFITINIB
     Indication: Product used for unknown indication
     Route: 048
     Dates: start: 20221209, end: 20230720
  2. SERTACONAZOLE NITRATE [Concomitant]
     Active Substance: SERTACONAZOLE NITRATE
     Dates: end: 20230818
  3. BACTRIM [Concomitant]
     Active Substance: SULFAMETHOXAZOLE\TRIMETHOPRIM
     Dates: end: 20230818
  4. MUPIROCIN [Concomitant]
     Active Substance: MUPIROCIN
     Dates: end: 20230818
  5. OPILOX [CICLOPIROX] [Concomitant]
     Dates: end: 20230818
  6. COSMETICS [Concomitant]
     Active Substance: COSMETICS
     Dates: end: 20230818
  7. EXELDERM [SULCONAZOLE NITRATE] [Concomitant]
     Dates: end: 20230818
  8. HYPOCHLOROUS ACID [Concomitant]
     Active Substance: HYPOCHLOROUS ACID
     Dates: end: 20230818
  9. SEVELAMER [Concomitant]
     Active Substance: SEVELAMER
     Dates: end: 20230724

REACTIONS (1)
  - Cataract [Recovered/Resolved with Sequelae]

NARRATIVE: CASE EVENT DATE: 20230717
